FAERS Safety Report 7825183-2 (Version None)
Quarter: 2011Q4

REPORT INFORMATION
  Report Type: 
  Country: None (occurrence: None)
  Receive Date: 20111019
  Receipt Date: 20111013
  Transmission Date: 20120403
  Serious: No
  Sender: FDA-Public Use
  Company Number: US-PFIZER INC-2011245543

PATIENT
  Sex: Female
  Weight: 64.853 kg

DRUGS (1)
  1. ZYVOX [Suspect]
     Indication: INFECTION
     Dosage: 600 MG, 2X/DAY
     Dates: start: 20111011

REACTIONS (2)
  - HAEMOGLOBIN DECREASED [None]
  - EXTRAVASATION [None]
